FAERS Safety Report 24457199 (Version 1)
Quarter: 2024Q4

REPORT INFORMATION
  Report Type: Spontaneous
  Country: FR (occurrence: FR)
  Receive Date: 20241018
  Receipt Date: 20241018
  Transmission Date: 20250115
  Serious: Yes (Hospitalization, Other)
  Sender: AMGEN
  Company Number: FR-AMGEN-FRASP2024202647

PATIENT
  Age: 88 Year
  Sex: Female
  Weight: 57 kg

DRUGS (2)
  1. NPLATE [Suspect]
     Active Substance: ROMIPLOSTIM
     Indication: Immune thrombocytopenia
     Dosage: UNK UNK, QWK
     Route: 040
     Dates: start: 2024
  2. NPLATE [Suspect]
     Active Substance: ROMIPLOSTIM
     Dosage: UNK, (RESTART AT REDUCED DOSAGE ON 27/SEP/2024)
     Route: 040
     Dates: start: 20240927

REACTIONS (2)
  - Myocardial infarction [Recovered/Resolved with Sequelae]
  - Thrombocytosis [Recovered/Resolved]

NARRATIVE: CASE EVENT DATE: 20240920
